FAERS Safety Report 9002831 (Version 1)
Quarter: 2013Q1

REPORT INFORMATION
  Report Type: Spontaneous
  Country: US (occurrence: US)
  Receive Date: 20130108
  Receipt Date: 20130108
  Transmission Date: 20140127
  Serious: Yes (Death)
  Sender: FDA-Public Use
  Company Number: US-BAYER-2013-002223

PATIENT
  Age: 64 Year
  Sex: Female

DRUGS (21)
  1. NAPROXEN SODIUM ({= 220 MG) [Suspect]
     Route: 048
  2. CIPROFLOXACIN [Suspect]
  3. DESIPRAMINE [Suspect]
     Route: 048
  4. DILTIAZEM ER [Suspect]
     Route: 048
  5. VENLAFAXINE [Suspect]
  6. LAMOTRIGINE [Suspect]
     Route: 048
  7. HYDROCHLOROTHIAZIDE [Suspect]
     Route: 048
  8. ARMODAFINIL [Suspect]
     Route: 048
  9. POTASSIUM CHLORIDE [Suspect]
     Route: 048
  10. TRIFLUOPERAZINE [Suspect]
     Route: 048
  11. ESCITALOPRAM [Suspect]
     Route: 048
  12. THYROID PREPARATIONS [Suspect]
     Route: 048
  13. PANTOPRAZOLE [Suspect]
     Route: 048
  14. LANSOPRAZOLE [Suspect]
  15. ROSUVASTATIN [Suspect]
     Route: 048
  16. NITROFURANTOIN [Suspect]
     Route: 048
  17. DICLOFENAC [Suspect]
     Route: 048
  18. ACETAMINOPHEN W/HYDROCODONE [Suspect]
     Route: 048
  19. ACETAMINOPHEN W/PROPOXYPHENE [Suspect]
     Route: 048
  20. SOLIFENACIN [Suspect]
     Route: 048
  21. PROGESTINE [Suspect]
     Route: 048

REACTIONS (2)
  - Toxicity to various agents [Fatal]
  - Completed suicide [None]
